FAERS Safety Report 4806036-0 (Version None)
Quarter: 2005Q4

REPORT INFORMATION
  Report Type: 
  Country: None (occurrence: None)
  Receive Date: 20051021
  Receipt Date: 20050422
  Transmission Date: 20060501
  Serious: Yes (Hospitalization)
  Sender: FDA-Public Use
  Company Number: PHHO2005US06686

PATIENT
  Age: 69 Year
  Sex: Female
  Weight: 81 kg

DRUGS (1)
  1. TEGASEROD [Suspect]
     Indication: DYSPEPSIA
     Dosage: 6 MG, BID
     Route: 048
     Dates: start: 20050221, end: 20050321

REACTIONS (4)
  - ABDOMINAL PAIN [None]
  - DEHYDRATION [None]
  - DIARRHOEA [None]
  - UTERINE LEIOMYOMA [None]
